FAERS Safety Report 26145086 (Version 1)
Quarter: 2025Q4

REPORT INFORMATION
  Report Type: Spontaneous
  Country: IN (occurrence: IN)
  Receive Date: 20251211
  Receipt Date: 20251211
  Transmission Date: 20260117
  Serious: Yes (Hospitalization)
  Sender: MYLAN
  Company Number: IN-MYLANLABS-2025M1105204

PATIENT
  Age: 74 Year
  Sex: Male

DRUGS (40)
  1. DOXORUBICIN [Suspect]
     Active Substance: DOXORUBICIN
     Indication: Diffuse large B-cell lymphoma
     Dosage: UNK, A PART OF R-CHOP REGIMEN, INITIALLY 4 CYCLES AND FURTHER 2 CYCLES
  2. DOXORUBICIN [Suspect]
     Active Substance: DOXORUBICIN
     Dosage: UNK, A PART OF R-CHOP REGIMEN, INITIALLY 4 CYCLES AND FURTHER 2 CYCLES
  3. DOXORUBICIN [Suspect]
     Active Substance: DOXORUBICIN
     Dosage: UNK, A PART OF R-CHOP REGIMEN, INITIALLY 4 CYCLES AND FURTHER 2 CYCLES
     Route: 065
  4. DOXORUBICIN [Suspect]
     Active Substance: DOXORUBICIN
     Dosage: UNK, A PART OF R-CHOP REGIMEN, INITIALLY 4 CYCLES AND FURTHER 2 CYCLES
     Route: 065
  5. DOXORUBICIN [Suspect]
     Active Substance: DOXORUBICIN
     Dosage: UNK, THERAPY CONTINUED
  6. DOXORUBICIN [Suspect]
     Active Substance: DOXORUBICIN
     Dosage: UNK, THERAPY CONTINUED
  7. DOXORUBICIN [Suspect]
     Active Substance: DOXORUBICIN
     Dosage: UNK, THERAPY CONTINUED
     Route: 065
  8. DOXORUBICIN [Suspect]
     Active Substance: DOXORUBICIN
     Dosage: UNK, THERAPY CONTINUED
     Route: 065
  9. RITUXIMAB [Suspect]
     Active Substance: RITUXIMAB
     Indication: Diffuse large B-cell lymphoma
     Dosage: UNK, A PART OF R-CHOP REGIMEN, INITIALLY 4 CYCLES AND FURTHER 2 CYCLES
  10. RITUXIMAB [Suspect]
     Active Substance: RITUXIMAB
     Dosage: UNK, A PART OF R-CHOP REGIMEN, INITIALLY 4 CYCLES AND FURTHER 2 CYCLES
  11. RITUXIMAB [Suspect]
     Active Substance: RITUXIMAB
     Dosage: UNK, A PART OF R-CHOP REGIMEN, INITIALLY 4 CYCLES AND FURTHER 2 CYCLES
     Route: 065
  12. RITUXIMAB [Suspect]
     Active Substance: RITUXIMAB
     Dosage: UNK, A PART OF R-CHOP REGIMEN, INITIALLY 4 CYCLES AND FURTHER 2 CYCLES
     Route: 065
  13. RITUXIMAB [Suspect]
     Active Substance: RITUXIMAB
     Dosage: UNK, THERAPY CONTINUED
  14. RITUXIMAB [Suspect]
     Active Substance: RITUXIMAB
     Dosage: UNK, THERAPY CONTINUED
  15. RITUXIMAB [Suspect]
     Active Substance: RITUXIMAB
     Dosage: UNK, THERAPY CONTINUED
     Route: 065
  16. RITUXIMAB [Suspect]
     Active Substance: RITUXIMAB
     Dosage: UNK, THERAPY CONTINUED
     Route: 065
  17. CYCLOPHOSPHAMIDE [Suspect]
     Active Substance: CYCLOPHOSPHAMIDE
     Indication: Diffuse large B-cell lymphoma
     Dosage: UNK, A PART OF R-CHOP REGIMEN, INITIALLY 4 CYCLES AND FURTHER 2 CYCLES
  18. CYCLOPHOSPHAMIDE [Suspect]
     Active Substance: CYCLOPHOSPHAMIDE
     Dosage: UNK, A PART OF R-CHOP REGIMEN, INITIALLY 4 CYCLES AND FURTHER 2 CYCLES
  19. CYCLOPHOSPHAMIDE [Suspect]
     Active Substance: CYCLOPHOSPHAMIDE
     Dosage: UNK, A PART OF R-CHOP REGIMEN, INITIALLY 4 CYCLES AND FURTHER 2 CYCLES
     Route: 065
  20. CYCLOPHOSPHAMIDE [Suspect]
     Active Substance: CYCLOPHOSPHAMIDE
     Dosage: UNK, A PART OF R-CHOP REGIMEN, INITIALLY 4 CYCLES AND FURTHER 2 CYCLES
     Route: 065
  21. CYCLOPHOSPHAMIDE [Suspect]
     Active Substance: CYCLOPHOSPHAMIDE
     Dosage: UNK, THERAPY CONTINUED
  22. CYCLOPHOSPHAMIDE [Suspect]
     Active Substance: CYCLOPHOSPHAMIDE
     Dosage: UNK, THERAPY CONTINUED
  23. CYCLOPHOSPHAMIDE [Suspect]
     Active Substance: CYCLOPHOSPHAMIDE
     Dosage: UNK, THERAPY CONTINUED
     Route: 065
  24. CYCLOPHOSPHAMIDE [Suspect]
     Active Substance: CYCLOPHOSPHAMIDE
     Dosage: UNK, THERAPY CONTINUED
     Route: 065
  25. PREDNISOLONE [Suspect]
     Active Substance: PREDNISOLONE
     Indication: Diffuse large B-cell lymphoma
     Dosage: UNK, A PART OF R-CHOP REGIMEN, INITIALLY 4 CYCLES AND FURTHER 2 CYCLES
  26. PREDNISOLONE [Suspect]
     Active Substance: PREDNISOLONE
     Dosage: UNK, A PART OF R-CHOP REGIMEN, INITIALLY 4 CYCLES AND FURTHER 2 CYCLES
  27. PREDNISOLONE [Suspect]
     Active Substance: PREDNISOLONE
     Dosage: UNK, A PART OF R-CHOP REGIMEN, INITIALLY 4 CYCLES AND FURTHER 2 CYCLES
     Route: 065
  28. PREDNISOLONE [Suspect]
     Active Substance: PREDNISOLONE
     Dosage: UNK, A PART OF R-CHOP REGIMEN, INITIALLY 4 CYCLES AND FURTHER 2 CYCLES
     Route: 065
  29. PREDNISOLONE [Suspect]
     Active Substance: PREDNISOLONE
     Dosage: UNK, THERAPY CONTINUED
  30. PREDNISOLONE [Suspect]
     Active Substance: PREDNISOLONE
     Dosage: UNK, THERAPY CONTINUED
  31. PREDNISOLONE [Suspect]
     Active Substance: PREDNISOLONE
     Dosage: UNK, THERAPY CONTINUED
     Route: 065
  32. PREDNISOLONE [Suspect]
     Active Substance: PREDNISOLONE
     Dosage: UNK, THERAPY CONTINUED
     Route: 065
  33. VINCRISTINE [Suspect]
     Active Substance: VINCRISTINE
     Indication: Diffuse large B-cell lymphoma
     Dosage: UNK, A PART OF R-CHOP REGIMEN, INITIALLY 4 CYCLES AND FURTHER 2 CYCLES
  34. VINCRISTINE [Suspect]
     Active Substance: VINCRISTINE
     Dosage: UNK, A PART OF R-CHOP REGIMEN, INITIALLY 4 CYCLES AND FURTHER 2 CYCLES
  35. VINCRISTINE [Suspect]
     Active Substance: VINCRISTINE
     Dosage: UNK, A PART OF R-CHOP REGIMEN, INITIALLY 4 CYCLES AND FURTHER 2 CYCLES
     Route: 065
  36. VINCRISTINE [Suspect]
     Active Substance: VINCRISTINE
     Dosage: UNK, A PART OF R-CHOP REGIMEN, INITIALLY 4 CYCLES AND FURTHER 2 CYCLES
     Route: 065
  37. VINCRISTINE [Suspect]
     Active Substance: VINCRISTINE
     Dosage: UNK, THERAPY CONTINUED
  38. VINCRISTINE [Suspect]
     Active Substance: VINCRISTINE
     Dosage: UNK, THERAPY CONTINUED
  39. VINCRISTINE [Suspect]
     Active Substance: VINCRISTINE
     Dosage: UNK, THERAPY CONTINUED
     Route: 065
  40. VINCRISTINE [Suspect]
     Active Substance: VINCRISTINE
     Dosage: UNK, THERAPY CONTINUED
     Route: 065

REACTIONS (6)
  - Neurotoxicity [Unknown]
  - Muscular weakness [Unknown]
  - Extensor plantar response [Unknown]
  - Cauda equina syndrome [Unknown]
  - Urinary retention [Unknown]
  - Anal incontinence [Unknown]
